FAERS Safety Report 12982575 (Version 2)
Quarter: 2016Q4

REPORT INFORMATION
  Report Type: Report from Study
  Country: AR (occurrence: AR)
  Receive Date: 20161129
  Receipt Date: 20161228
  Transmission Date: 20170207
  Serious: Yes (Hospitalization)
  Sender: FDA-Public Use
  Company Number: PHHY2014AR141755

PATIENT
  Age: 62 Year
  Sex: Female

DRUGS (5)
  1. XOLAIR [Suspect]
     Active Substance: OMALIZUMAB
     Dosage: 600 MG, QMO
     Route: 065
     Dates: start: 201409
  2. XOLAIR [Suspect]
     Active Substance: OMALIZUMAB
     Dosage: 150 MG (3 MONTHLY)
     Route: 065
  3. XOLAIR [Suspect]
     Active Substance: OMALIZUMAB
     Dosage: 150 MG (3 MONTHLY)
     Route: 065
     Dates: start: 2013, end: 2014
  4. VENTOLIN [Suspect]
     Active Substance: ALBUTEROL SULFATE
     Indication: PRODUCT USED FOR UNKNOWN INDICATION
     Route: 065
  5. XOLAIR [Suspect]
     Active Substance: OMALIZUMAB
     Indication: ASTHMA
     Dosage: 300 (UNITS NOT REPORTED), EVERY 15 DAYS
     Route: 065
     Dates: start: 2011, end: 2014

REACTIONS (13)
  - Nasal discomfort [Recovering/Resolving]
  - Breath sounds abnormal [Recovering/Resolving]
  - Dust allergy [Recovering/Resolving]
  - Headache [Recovering/Resolving]
  - Pneumonia [Recovered/Resolved]
  - Lower respiratory tract infection bacterial [Recovering/Resolving]
  - Blood potassium decreased [Unknown]
  - Throat irritation [Recovering/Resolving]
  - Intervertebral disc protrusion [Recovering/Resolving]
  - Bronchospasm [Recovering/Resolving]
  - Pulmonary oedema [Recovering/Resolving]
  - Back pain [Recovering/Resolving]
  - Pyrexia [Recovering/Resolving]

NARRATIVE: CASE EVENT DATE: 2014
